FAERS Safety Report 5618291-8 (Version None)
Quarter: 2008Q1

REPORT INFORMATION
  Report Type: 
  Country: None (occurrence: None)
  Receive Date: 20080207
  Receipt Date: 20080124
  Transmission Date: 20080703
  Serious: Yes (Hospitalization)
  Sender: FDA-Public Use
  Company Number: GB-AMGEN-US262646

PATIENT
  Sex: Male
  Weight: 43.6 kg

DRUGS (2)
  1. ENBREL [Suspect]
     Indication: POLYARTHRITIS
     Route: 058
     Dates: start: 20030917, end: 20060301
  2. CORTICOSTEROIDS [Concomitant]
     Route: 048
     Dates: start: 20030601

REACTIONS (1)
  - HIP ARTHROPLASTY [None]
